FAERS Safety Report 5527292-X (Version None)
Quarter: 2007Q4

REPORT INFORMATION
  Report Type: 
  Country: None (occurrence: None)
  Receive Date: 20071128
  Receipt Date: 20071121
  Transmission Date: 20080405
  Serious: Yes (Death)
  Sender: FDA-Public Use
  Company Number: B0479685A

PATIENT
  Age: 68 Year
  Sex: Female
  Weight: 57 kg

DRUGS (8)
  1. TYKERB [Suspect]
     Indication: BREAST CANCER METASTATIC
     Dosage: 1250MG PER DAY
     Route: 048
     Dates: start: 20070614, end: 20070715
  2. XELODA [Suspect]
     Indication: BREAST CANCER METASTATIC
     Route: 065
     Dates: start: 20070614, end: 20070715
  3. DURAGESIC-100 [Concomitant]
     Indication: PAIN
     Dosage: 12MG PER DAY
  4. LAROXYL [Concomitant]
     Indication: PAIN
     Dosage: 100MG PER DAY
     Route: 048
  5. IMOVANE [Concomitant]
     Indication: INSOMNIA
     Dosage: 7.5MG PER DAY
     Route: 048
  6. EFFERALGAN [Concomitant]
     Indication: PAIN
     Dosage: 3G PER DAY
     Route: 048
  7. ACTISKENAN [Concomitant]
     Indication: PAIN
     Dosage: 10MG PER DAY
     Route: 048
  8. INSULINE [Concomitant]
     Indication: DIABETES MELLITUS
     Route: 042
     Dates: start: 20070719

REACTIONS (10)
  - ANOREXIA [None]
  - ASPHYXIA [None]
  - BLOOD VISCOSITY INCREASED [None]
  - DIARRHOEA [None]
  - DISEASE PROGRESSION [None]
  - DYSPNOEA [None]
  - GENERAL PHYSICAL HEALTH DETERIORATION [None]
  - HAEMOTHORAX [None]
  - LUNG INFILTRATION [None]
  - SUDDEN DEATH [None]
